FAERS Safety Report 9551958 (Version 1)
Quarter: 2013Q2

REPORT INFORMATION
  Report Type: Spontaneous
  Country: US (occurrence: None)
  Receive Date: 20130627
  Receipt Date: 20130627
  Transmission Date: 20140414
  Serious: No
  Sender: FDA-Public Use
  Company Number: 1000045581

PATIENT
  Age: 68 Year
  Sex: Female

DRUGS (18)
  1. LINZESS (LINACLOTIDE) (145 MICROGRAM, CAPSULES) [Suspect]
     Indication: IRRITABLE BOWEL SYNDROME
     Route: 048
     Dates: start: 20130515, end: 20130521
  2. BONIVA (IBANDRONATE SODIUM) [Concomitant]
  3. CALCIUM (CALCIUM) [Concomitant]
  4. PLAQUENIL (HYDROXYCHLOROQUINE) [Concomitant]
  5. PROTONIX (PANTOPRAZOLE SODIUM SESQUIHYDRATE) [Concomitant]
  6. KLOR-CON (POTASSIUM CHLORIDE) [Concomitant]
  7. EVOXAC (CEVIMELINE HYDROCHLORIDE) [Concomitant]
  8. WARFARIN [Concomitant]
  9. MVI (VITAMINS NOS) [Concomitant]
  10. FISH OIL [Concomitant]
  11. FLAXSEED [Concomitant]
  12. COD LIVER OIL [Concomitant]
  13. VITAMIN B 12 [Concomitant]
  14. VITAMIN D3 [Concomitant]
  15. PROBIOTIC [Concomitant]
  16. COLACE [Concomitant]
  17. DULCOLAX (BISACODYL) [Concomitant]
  18. MUCINEX (GUAIFENESIN) [Concomitant]

REACTIONS (2)
  - Drug ineffective [None]
  - Overdose [None]
